FAERS Safety Report 8779864 (Version 1)
Quarter: 2012Q4

REPORT INFORMATION
  Report Type: Report from Study
  Country: HU (occurrence: HU)
  Receive Date: 20120912
  Receipt Date: 20120912
  Transmission Date: 20130627
  Serious: Yes (Death)
  Sender: FDA-Public Use
  Company Number: HU-ROCHE-1123344

PATIENT
  Sex: Female

DRUGS (1)
  1. XELODA [Suspect]
     Indication: GASTRIC CANCER
     Route: 065
     Dates: start: 20081203, end: 200904

REACTIONS (1)
  - Death [Fatal]
